FAERS Safety Report 6264295-4 (Version None)
Quarter: 2009Q3

REPORT INFORMATION
  Report Type: 
  Country: None (occurrence: None)
  Receive Date: 20090710
  Receipt Date: 20090630
  Transmission Date: 20100115
  Serious: Yes (Hospitalization)
  Sender: FDA-Public Use
  Company Number: A0704657A

PATIENT
  Age: 65 Year
  Sex: Male
  Weight: 100 kg

DRUGS (9)
  1. AVANDIA [Suspect]
     Dosage: 4MG PER DAY
     Route: 048
     Dates: start: 20010807, end: 20060109
  2. AVANDAMET [Suspect]
     Dosage: 2MG PER DAY
     Route: 048
     Dates: start: 20040405, end: 20050501
  3. GLUCOTROL [Concomitant]
  4. GLUCOTROL XL [Concomitant]
  5. FUROSEMIDE [Concomitant]
  6. NITROGLYCERIN [Concomitant]
  7. HYZAAR [Concomitant]
  8. DILTIAZEM [Concomitant]
  9. LIPITOR [Concomitant]

REACTIONS (6)
  - CARDIAC FAILURE CONGESTIVE [None]
  - CARDIOMYOPATHY [None]
  - CORONARY ARTERY DISEASE [None]
  - HEART INJURY [None]
  - MYOCARDIAL INFARCTION [None]
  - MYOCARDIAL ISCHAEMIA [None]
